FAERS Safety Report 24704821 (Version 3)
Quarter: 2024Q4

REPORT INFORMATION
  Report Type: Spontaneous
  Country: CA (occurrence: CA)
  Receive Date: 20241206
  Receipt Date: 20241220
  Transmission Date: 20250114
  Serious: Yes (Other)
  Sender: CELLTRION
  Company Number: CA-PFIZER INC-202400313238

PATIENT

DRUGS (3)
  1. INFLECTRA [Suspect]
     Active Substance: INFLIXIMAB-DYYB
     Indication: Crohn^s disease
     Dosage: 300 MG WEEK 0,2,6 INDUCTION THEN EVERY 8 WEEKS
     Route: 042
     Dates: start: 20240821
  2. INFLECTRA [Suspect]
     Active Substance: INFLIXIMAB-DYYB
     Dosage: 300 MG WEEK 0,2,6 INDUCTION THEN EVERY 8 WEEKS
     Route: 042
     Dates: start: 20241002
  3. INFLECTRA [Suspect]
     Active Substance: INFLIXIMAB-DYYB
     Dosage: 300 MG ,10 WEEKS AND 1 DAY AFTER LAST TREATMENT ,(WEEK 0,2,6 INDUCTION THEN EVERY 8 WEEKS)
     Route: 042
     Dates: start: 20241212

REACTIONS (10)
  - Gastrointestinal disorder [Unknown]
  - Purulent discharge [Not Recovered/Not Resolved]
  - Ulcer [Unknown]
  - Enterocutaneous fistula [Unknown]
  - Enterovesical fistula [Unknown]
  - Hydronephrosis [Recovered/Resolved]
  - Crohn^s disease [Unknown]
  - Blood pressure increased [Unknown]
  - Wound infection [Unknown]
  - Defaecation urgency [Not Recovered/Not Resolved]

NARRATIVE: CASE EVENT DATE: 20240101
